FAERS Safety Report 4924255-X (Version None)
Quarter: 2006Q1

REPORT INFORMATION
  Report Type: 
  Country: None (occurrence: None)
  Receive Date: 20060221
  Receipt Date: 20060207
  Transmission Date: 20060701
  Serious: Yes (Hospitalization, Other)
  Sender: FDA-Public Use
  Company Number: 2006019227

PATIENT
  Age: 63 Year
  Sex: Male
  Weight: 101.6057 kg

DRUGS (9)
  1. LIPITOR [Suspect]
     Indication: BLOOD CHOLESTEROL INCREASED
     Dosage: 10 MG (10 MG, 1 IN 1 D)
  2. LIPITOR [Suspect]
     Indication: BLOOD TRIGLYCERIDES INCREASED
     Dosage: 10 MG (10 MG, 1 IN 1 D)
  3. DOXAZOSIN [Concomitant]
  4. DITROPAN XL [Concomitant]
  5. PREVACID [Concomitant]
  6. ALLEGRA [Concomitant]
  7. DIOVAN HCT [Concomitant]
  8. VITAMINS [Concomitant]
  9. MINERALS NOS [Concomitant]

REACTIONS (5)
  - ARTERIAL OCCLUSIVE DISEASE [None]
  - COMPLICATION OF DEVICE INSERTION [None]
  - CONSTIPATION [None]
  - STENT OCCLUSION [None]
  - UNDERDOSE [None]
